FAERS Safety Report 7363158-0 (Version None)
Quarter: 2011Q1

REPORT INFORMATION
  Report Type: 
  Country: None (occurrence: None)
  Receive Date: 20110321
  Receipt Date: 20091122
  Transmission Date: 20110831
  Serious: Yes (Death, Other)
  Sender: FDA-Public Use
  Company Number: US-BAYER-200940587NA

PATIENT
  Sex: Female
  Weight: 49.887 kg

DRUGS (19)
  1. TRIAMCINOLONE [Concomitant]
     Dosage: UNK
     Route: 061
     Dates: start: 20040427
  2. IBUPROFEN [Concomitant]
     Route: 048
  3. TRAZODONE [Concomitant]
     Dosage: UNK
     Route: 048
     Dates: start: 20040316
  4. BENZONATATE [Concomitant]
     Dosage: UNK
     Route: 048
     Dates: start: 20040525
  5. OMNIPAQUE 140 [Concomitant]
     Indication: CATHETERISATION CARDIAC
     Dosage: 200 ML, UNK
     Dates: start: 20040519
  6. LASIX [Concomitant]
     Dosage: 40 MG, UNK
     Route: 048
  7. AZITHROMYCIN [Concomitant]
     Indication: ANTIBIOTIC PROPHYLAXIS
     Dosage: 500 MG, QD
     Route: 048
     Dates: end: 20040216
  8. LISINOPRIL [Concomitant]
     Dosage: UNK
     Dates: start: 19800101
  9. FUROSEMIDE [Concomitant]
     Dosage: UNK
     Dates: start: 19900101
  10. LASIX [Concomitant]
     Dosage: UNK
     Dates: start: 19900101
  11. AVELOX [Concomitant]
     Indication: ANTIBIOTIC PROPHYLAXIS
     Dosage: 400 MG, UNK
     Route: 048
     Dates: end: 20040301
  12. HEPARIN SODIUM [Concomitant]
  13. TRASYLOL [Suspect]
     Indication: MITRAL VALVE REPAIR
     Route: 042
     Dates: start: 20040618
  14. ASPIRIN [Concomitant]
  15. ZANTAC [Concomitant]
     Dosage: 150 MG, QD
     Route: 048
  16. ALDACTONE [Concomitant]
     Dosage: 25 MG, QD
     Route: 048
  17. BIAXIN [Concomitant]
     Indication: ANTIBIOTIC PROPHYLAXIS
     Dosage: UNK
     Route: 048
     Dates: start: 20040201, end: 20040201
  18. SODIUM BICARBONATE [Concomitant]
  19. DOPAMINE [Concomitant]
     Dosage: 5MCG/KG/MIN
     Dates: start: 20040618

REACTIONS (24)
  - RENAL INJURY [None]
  - INJURY [None]
  - DEATH [None]
  - EMOTIONAL DISTRESS [None]
  - OEDEMA PERIPHERAL [None]
  - VOMITING [None]
  - UNEVALUABLE EVENT [None]
  - ANHEDONIA [None]
  - ACUTE RESPIRATORY DISTRESS SYNDROME [None]
  - ABDOMINAL PAIN [None]
  - RENAL IMPAIRMENT [None]
  - PAIN [None]
  - HEPATIC FAILURE [None]
  - RETROPERITONEAL HAEMATOMA [None]
  - ANXIETY [None]
  - TROPONIN INCREASED [None]
  - CARDIAC ARREST [None]
  - RENAL FAILURE [None]
  - MULTI-ORGAN FAILURE [None]
  - HYPOTENSION [None]
  - STRESS [None]
  - FEAR [None]
  - DEEP VEIN THROMBOSIS [None]
  - SEPTIC SHOCK [None]
